FAERS Safety Report 5866285-X (Version None)
Quarter: 2008Q3

REPORT INFORMATION
  Report Type: 
  Country: None (occurrence: None)
  Receive Date: 20080901
  Receipt Date: 20080819
  Transmission Date: 20090109
  Serious: Yes (Death)
  Sender: FDA-Public Use
  Company Number: GB-RANBAXY-2008RR-17487

PATIENT

DRUGS (4)
  1. OLANZAPINE [Concomitant]
     Indication: BIPOLAR DISORDER
     Dosage: 15 MG, QD
     Route: 048
  2. CODEINE SUL TAB [Suspect]
     Indication: DIARRHOEA
     Dosage: 60 MG, BID
     Route: 048
     Dates: start: 20071029, end: 20071030
  3. LEVOTHYROXINE [Concomitant]
     Indication: HYPOTHYROIDISM
     Dosage: UNK
     Dates: start: 20040101
  4. VALPROIC ACID [Concomitant]
     Indication: BIPOLAR DISORDER
     Dosage: 500 MG, UNK
     Route: 048

REACTIONS (2)
  - RESPIRATORY DEPRESSION [None]
  - SEDATION [None]
